FAERS Safety Report 8404878 (Version 3)
Quarter: 2012Q4

REPORT INFORMATION
  Report Type: 
  Country: US (occurrence: US)
  Receive Date: 20120214
  Receipt Date: 20121105
  Transmission Date: 20130627
  Serious: Yes (Hospitalization)
  Sender: FDA-Public Use
  Company Number: US-BAYER-2012-013803

PATIENT
  Age: 25 Year
  Sex: Female
  Weight: 60.32 kg

DRUGS (4)
  1. YAZ [Suspect]
     Indication: CONTRACEPTION
     Dates: start: 200608, end: 200701
  2. YAZ [Suspect]
     Indication: ACNE
  3. YASMIN [Suspect]
  4. ENDRINE [EPHEDRINE] [Concomitant]
     Indication: WEIGHT ABNORMAL

REACTIONS (4)
  - Cerebral thrombosis [Recovered/Resolved]
  - Superior sagittal sinus thrombosis [Recovered/Resolved]
  - Migraine [Recovered/Resolved]
  - Vomiting [Recovered/Resolved]
